FAERS Safety Report 7313054-X (Version None)
Quarter: 2011Q1

REPORT INFORMATION
  Report Type: 
  Country: None (occurrence: None)
  Receive Date: 20110225
  Receipt Date: 20080529
  Transmission Date: 20110831
  Serious: No
  Sender: FDA-Public Use
  Company Number: 2008BI014184

PATIENT
  Age: 51 Year
  Sex: Male

DRUGS (2)
  1. AVONEX [Concomitant]
     Indication: MULTIPLE SCLEROSIS
     Route: 030
  2. TYSABRI [Suspect]
     Indication: MULTIPLE SCLEROSIS
     Route: 042
     Dates: start: 20080422, end: 20080821

REACTIONS (4)
  - COUGH [None]
  - BRONCHITIS [None]
  - PYREXIA [None]
  - NASOPHARYNGITIS [None]
